FAERS Safety Report 21513500 (Version 1)
Quarter: 2022Q4

REPORT INFORMATION
  Report Type: Spontaneous
  Country: US (occurrence: None)
  Receive Date: 20221026
  Receipt Date: 20221026
  Transmission Date: 20230113
  Serious: No
  Sender: FDA-Public Use
  Company Number: None

PATIENT
  Age: 68 Year
  Sex: Female

DRUGS (2)
  1. OPSUMIT [Suspect]
     Active Substance: MACITENTAN
     Indication: Pulmonary arterial hypertension
     Dosage: 10MG QD ORAL?
     Route: 048
     Dates: start: 20160802
  2. VELETRI [Concomitant]
     Active Substance: EPOPROSTENOL

REACTIONS (4)
  - Complication associated with device [None]
  - Device malfunction [None]
  - Deep vein thrombosis [None]
  - Pulmonary arterial hypertension [None]

NARRATIVE: CASE EVENT DATE: 20221005
